FAERS Safety Report 19388783 (Version 1)
Quarter: 2021Q2

REPORT INFORMATION
  Report Type: Spontaneous
  Country: US (occurrence: US)
  Receive Date: 20210608
  Receipt Date: 20210608
  Transmission Date: 20210717
  Serious: Yes (Hospitalization, Other)
  Sender: FDA-Public Use
  Company Number: US-SA-2021SA188262

PATIENT
  Age: 42 Year
  Sex: Female

DRUGS (10)
  1. DEPAKOTE [Concomitant]
     Active Substance: DIVALPROEX SODIUM
  2. SULFONAMIDE [Concomitant]
     Active Substance: UNSPECIFIED INGREDIENT
  3. NIFEDIPINE. [Concomitant]
     Active Substance: NIFEDIPINE
  4. TIZANIDINE. [Concomitant]
     Active Substance: TIZANIDINE
  5. LAMOTRIGINE. [Concomitant]
     Active Substance: LAMOTRIGINE
  6. IMITREX [Concomitant]
     Active Substance: SUMATRIPTAN SUCCINATE
     Dosage: 250MG
  7. DUPILUMAB [Suspect]
     Active Substance: DUPILUMAB
     Indication: ASTHMA
     Dosage: 300 MG, QOW
     Route: 058
     Dates: start: 20200616
  8. RESTASIS [Concomitant]
     Active Substance: CYCLOSPORINE
  9. CIPRO [Concomitant]
     Active Substance: CIPROFLOXACIN HYDROCHLORIDE
  10. PREDNISONE. [Concomitant]
     Active Substance: PREDNISONE
     Indication: URINARY TRACT INFECTION

REACTIONS (2)
  - Behcet^s syndrome [Not Recovered/Not Resolved]
  - Urinary tract infection [Not Recovered/Not Resolved]

NARRATIVE: CASE EVENT DATE: 20210505
